FAERS Safety Report 6539826-7 (Version None)
Quarter: 2010Q1

REPORT INFORMATION
  Report Type: 
  Country: None (occurrence: None)
  Receive Date: 20100115
  Receipt Date: 20091216
  Transmission Date: 20100710
  Serious: Yes (Other)
  Sender: FDA-Public Use
  Company Number: US-BAYER-200943528NA

PATIENT
  Age: 74 Year
  Sex: Female
  Weight: 91 kg

DRUGS (1)
  1. ULTRAVIST (PHARMACY BULK) [Suspect]
     Indication: COMPUTERISED TOMOGRAM ABDOMEN
     Dosage: TOTAL DAILY DOSE: 96  ML
     Route: 042
     Dates: start: 20091216, end: 20091216

REACTIONS (5)
  - DYSPHAGIA [None]
  - LARYNGEAL OEDEMA [None]
  - PARAESTHESIA [None]
  - PHARYNGEAL OEDEMA [None]
  - SWOLLEN TONGUE [None]
